FAERS Safety Report 22634422 (Version 1)
Quarter: 2023Q2

REPORT INFORMATION
  Report Type: Spontaneous
  Country: US (occurrence: None)
  Receive Date: 20230620
  Receipt Date: 20230620
  Transmission Date: 20230722
  Serious: Yes (Hospitalization)
  Sender: FDA-Public Use
  Company Number: None

PATIENT
  Age: 39 Year
  Sex: Female

DRUGS (1)
  1. FASENRA [Suspect]
     Active Substance: BENRALIZUMAB
     Dosage: OTHER FREQUENCY : ONCE 8 WEEKS;?
     Route: 058

REACTIONS (2)
  - Parainfluenzae virus infection [None]
  - Therapy interrupted [None]

NARRATIVE: CASE EVENT DATE: 20230615
